FAERS Safety Report 6144826-5 (Version None)
Quarter: 2009Q2

REPORT INFORMATION
  Report Type: 
  Country: None (occurrence: None)
  Receive Date: 20090406
  Receipt Date: 20090401
  Transmission Date: 20091009
  Serious: Yes (Hospitalization)
  Sender: FDA-Public Use
  Company Number: IT-AMGEN-UK329462

PATIENT
  Sex: Female

DRUGS (6)
  1. ARANESP [Suspect]
     Indication: RENAL FAILURE CHRONIC
     Route: 042
     Dates: start: 20090107, end: 20090115
  2. CEFOTAXIME [Suspect]
     Route: 030
     Dates: start: 20090108, end: 20090109
  3. LASIX [Concomitant]
     Route: 048
  4. ROCALTROL [Concomitant]
     Route: 048
  5. FERROUS GLUCONATE [Concomitant]
     Route: 048
  6. BARNIDIPINE [Concomitant]
     Route: 048

REACTIONS (9)
  - ANAEMIA [None]
  - C-REACTIVE PROTEIN INCREASED [None]
  - DRUG HYPERSENSITIVITY [None]
  - HYPERPYREXIA [None]
  - PRURITUS GENERALISED [None]
  - PYREXIA [None]
  - RENAL FAILURE ACUTE [None]
  - SKIN TOXICITY [None]
  - URTICARIA [None]
